FAERS Safety Report 22396319 (Version 1)
Quarter: 2023Q2

REPORT INFORMATION
  Report Type: Spontaneous
  Country: CN (occurrence: None)
  Receive Date: 20230601
  Receipt Date: 20230601
  Transmission Date: 20230721
  Serious: Yes (Other)
  Sender: FDA-Public Use
  Company Number: 2023A103242

PATIENT
  Age: 49 Year
  Sex: Male
  Weight: 69 kg

DRUGS (4)
  1. LYNPARZA [Suspect]
     Active Substance: OLAPARIB
     Indication: Prostate cancer
     Route: 048
     Dates: start: 20230331
  2. LYNPARZA [Suspect]
     Active Substance: OLAPARIB
     Indication: Metastases to bone
     Route: 048
     Dates: start: 20230331
  3. ABIRATERONE [Concomitant]
     Active Substance: ABIRATERONE
     Dosage: UNKNOWN
  4. INDAPAMIDE [Concomitant]
     Active Substance: INDAPAMIDE
     Dosage: UNKNOWN

REACTIONS (4)
  - Malignant neoplasm progression [Not Recovered/Not Resolved]
  - Transaminases increased [Recovered/Resolved]
  - Pruritus [Unknown]
  - Drug ineffective [Not Recovered/Not Resolved]
